FAERS Safety Report 11075102 (Version 2)
Quarter: 2015Q2

REPORT INFORMATION
  Report Type: Report from Study
  Country: US (occurrence: US)
  Receive Date: 20150429
  Receipt Date: 20150501
  Transmission Date: 20150821
  Serious: Yes (Other)
  Sender: FDA-Public Use
  Company Number: US-PFIZER INC-2015147442

PATIENT
  Age: 49 Year
  Sex: Female

DRUGS (4)
  1. BUPIVACAINE [Suspect]
     Active Substance: BUPIVACAINE
     Indication: BLEPHAROPLASTY
     Route: 050
  2. LIDOCAINE HCL [Suspect]
     Active Substance: LIDOCAINE HYDROCHLORIDE
     Indication: BLEPHAROPLASTY
     Route: 050
  3. ADRENALINE [Suspect]
     Active Substance: EPINEPHRINE
     Indication: BLEPHAROPLASTY
     Route: 050
  4. HYALURONIDASE [Suspect]
     Active Substance: HYALURONIDASE
     Indication: BLEPHAROPLASTY
     Route: 050

REACTIONS (3)
  - Myopathy toxic [Recovered/Resolved]
  - Muscular weakness [Recovered/Resolved]
  - Lagophthalmos [Recovered/Resolved]
